FAERS Safety Report 9868805 (Version 1)
Quarter: 2014Q1

REPORT INFORMATION
  Report Type: Report from Study
  Country: FR (occurrence: FR)
  Receive Date: 20140204
  Receipt Date: 20140204
  Transmission Date: 20141002
  Serious: Yes (Other)
  Sender: FDA-Public Use
  Company Number: FR-PFIZER INC-2014031772

PATIENT
  Age: 61 Year
  Sex: Female
  Weight: 47 kg

DRUGS (2)
  1. SUNITINIB MALATE [Suspect]
     Indication: RENAL CANCER METASTATIC
     Dosage: 50 MG, CYCLIC, 4 WEEKS ON, 2 WEEKS OFF
     Dates: start: 200704, end: 201103
  2. SUNITINIB MALATE [Suspect]
     Dosage: 50 MG, CYCLIC, 4 WEEKS ON, 2 WEEKS OFF
     Dates: start: 201302

REACTIONS (16)
  - Neutropenia [Recovered/Resolved]
  - Neutropenia [Recovered/Resolved]
  - Renal failure [Unknown]
  - Spinal cord compression [Not Recovered/Not Resolved]
  - Hyperthyroidism [Not Recovered/Not Resolved]
  - Gingival bleeding [Recovered/Resolved]
  - Asthenia [Recovering/Resolving]
  - Anaemia [Recovering/Resolving]
  - Dysaesthesia [Recovered/Resolved]
  - Diarrhoea [Unknown]
  - Myelocytosis [Unknown]
  - Urinary tract infection [Unknown]
  - Albuminuria [Unknown]
  - Hypercholesterolaemia [Not Recovered/Not Resolved]
  - Anaemia [Not Recovered/Not Resolved]
  - Bone swelling [Recovered/Resolved]
